FAERS Safety Report 9211973 (Version 1)
Quarter: 2013Q2

REPORT INFORMATION
  Report Type: Spontaneous
  Country: US (occurrence: US)
  Receive Date: 20130404
  Receipt Date: 20130404
  Transmission Date: 20140414
  Serious: No
  Sender: FDA-Public Use
  Company Number: US-AMGEN-USASP2013017045

PATIENT
  Age: 56 Year
  Sex: Male

DRUGS (2)
  1. ENBREL [Suspect]
     Indication: PSORIATIC ARTHROPATHY
     Dosage: 50MG EVERY 5 DAYS
     Dates: start: 20121205
  2. METHOTREXATE [Concomitant]
     Dosage: 8 (2.5MG ) TABS WEEKLY
     Dates: start: 201205, end: 201302

REACTIONS (2)
  - Confusional state [Recovered/Resolved]
  - Mental impairment [Recovered/Resolved]
